FAERS Safety Report 14360557 (Version 1)
Quarter: 2018Q1

REPORT INFORMATION
  Report Type: Spontaneous
  Country: IT (occurrence: IT)
  Receive Date: 20180106
  Receipt Date: 20180106
  Transmission Date: 20180509
  Serious: Yes (Death)
  Sender: FDA-Public Use
  Company Number: IT-AUROBINDO-AUR-APL-2018-001093

PATIENT
  Sex: Female

DRUGS (8)
  1. VANCOMYCIN HCL [Suspect]
     Active Substance: VANCOMYCIN HYDROCHLORIDE
     Indication: ESCHERICHIA INFECTION
     Dosage: ()
  2. CIPROFLOXACIN. [Suspect]
     Active Substance: CIPROFLOXACIN
     Indication: EVIDENCE BASED TREATMENT
     Dosage: ()
  3. VANCOMYCIN HCL [Suspect]
     Active Substance: VANCOMYCIN HYDROCHLORIDE
     Indication: STAPHYLOCOCCAL INFECTION
  4. TIGECYCLINE. [Suspect]
     Active Substance: TIGECYCLINE
     Indication: EVIDENCE BASED TREATMENT
     Dosage: ()
  5. MUPIROCIN. [Suspect]
     Active Substance: MUPIROCIN
     Indication: BACTERIAL INFECTION
     Dosage: ()
     Route: 045
  6. TEICOPLANIN [Suspect]
     Active Substance: TEICOPLANIN
     Dosage: ()
  7. MEROPENEM. [Suspect]
     Active Substance: MEROPENEM
     Indication: ESCHERICHIA INFECTION
     Dosage: ()
     Route: 042
  8. TIGECYCLINE. [Suspect]
     Active Substance: TIGECYCLINE
     Indication: BACTERIAL INFECTION

REACTIONS (1)
  - Pathogen resistance [Fatal]
